FAERS Safety Report 9765012 (Version 7)
Quarter: 2014Q2

REPORT INFORMATION
  Report Type: Spontaneous
  Country: US (occurrence: US)
  Receive Date: 20131217
  Receipt Date: 20140409
  Transmission Date: 20141212
  Serious: No
  Sender: FDA-Public Use
  Company Number: US-009507513-1312USA006079

PATIENT
  Sex: Female

DRUGS (1)
  1. IMPLANON [Suspect]
     Indication: CONTRACEPTION
     Dosage: UNKNOWN DOSAGE, INSERTED IN LEFT ARM
     Route: 059
     Dates: start: 201011

REACTIONS (5)
  - Device dislocation [Unknown]
  - Metrorrhagia [Unknown]
  - Menstruation irregular [Unknown]
  - Medical device complication [Unknown]
  - Incorrect drug administration duration [Unknown]
